FAERS Safety Report 4819043-9 (Version None)
Quarter: 2005Q4

REPORT INFORMATION
  Report Type: 
  Country: None (occurrence: None)
  Receive Date: 20051101
  Receipt Date: 20051021
  Transmission Date: 20060501
  Serious: Yes (Death)
  Sender: FDA-Public Use
  Company Number: 217750

PATIENT
  Age: 77 Year
  Sex: Male

DRUGS (4)
  1. RITUXAN(RITUXIMAB) CONC FOR SOLUTION FOR INFUSION [Suspect]
     Indication: NON-HODGKIN'S LYMPHOMA
     Dosage: 560 MG, SINGLE, INTRAVENOUS
     Route: 042
     Dates: start: 20050722, end: 20050722
  2. VINCRISTINE [Suspect]
     Indication: NON-HODGKIN'S LYMPHOMA
     Dosage: 1.4 MG, SINGLE, INTRAVENOUS
     Route: 042
     Dates: start: 20050725, end: 20050725
  3. CYCLOPHOSPHAMIDE [Suspect]
     Indication: NON-HODGKIN'S LYMPHOMA
     Dosage: 750 MG, SINGLE, INTRAVENOUS
     Route: 042
     Dates: start: 20050725, end: 20050725
  4. PIRARUBICIN HYDROCHLORIDE(PIRARUBICIN) [Suspect]
     Indication: NON-HODGKIN'S LYMPHOMA
     Dosage: 50 MG, SINGLE, INTRAVENOUS
     Route: 042
     Dates: start: 20050725, end: 20050725

REACTIONS (3)
  - EOSINOPHIL COUNT DECREASED [None]
  - EOSINOPHIL COUNT INCREASED [None]
  - PNEUMONIA ASPERGILLUS [None]
